FAERS Safety Report 14614018 (Version 3)
Quarter: 2018Q4

REPORT INFORMATION
  Report Type: Spontaneous
  Country: LT (occurrence: LT)
  Receive Date: 20180308
  Receipt Date: 20181012
  Transmission Date: 20190204
  Serious: Yes (Death, Other)
  Sender: FDA-Public Use
  Company Number: LT-PFIZER INC-2018096705

PATIENT
  Sex: Female

DRUGS (2)
  1. SUNITINIB MALATE. [Suspect]
     Active Substance: SUNITINIB MALATE
     Dosage: 50 MG 1X/DAY (2/1 SCHEDULE)
     Dates: start: 201401, end: 20141023
  2. SUNITINIB MALATE. [Suspect]
     Active Substance: SUNITINIB MALATE
     Indication: RENAL CELL CARCINOMA
     Dosage: 50 MG, 1X/DAY, (4/2 SCHEDULE)
     Dates: start: 201305, end: 201401

REACTIONS (10)
  - Haematotoxicity [Unknown]
  - Ascites [Unknown]
  - Fatigue [Unknown]
  - Thrombocytopenia [Unknown]
  - Hypertension [Unknown]
  - Oedema peripheral [Unknown]
  - Anaemia [Unknown]
  - Neoplasm progression [Fatal]
  - Neutropenia [Unknown]
  - Hypothyroidism [Unknown]

NARRATIVE: CASE EVENT DATE: 20141023
